FAERS Safety Report 13306690 (Version 1)
Quarter: 2017Q1

REPORT INFORMATION
  Report Type: Spontaneous
  Country: US (occurrence: US)
  Receive Date: 20170308
  Receipt Date: 20170308
  Transmission Date: 20170428
  Serious: No
  Sender: FDA-Public Use
  Company Number: US-AKORN PHARMACEUTICALS-2016AKN00271

PATIENT
  Age: 21 Year
  Sex: Female

DRUGS (2)
  1. MYORISAN [Suspect]
     Active Substance: ISOTRETINOIN
     Indication: ACNE
     Dosage: 30 MG, 2X/DAY
     Route: 048
     Dates: start: 20160125, end: 20160404
  2. MYORISAN [Suspect]
     Active Substance: ISOTRETINOIN
     Dosage: UNK
     Dates: start: 20160407, end: 2016

REACTIONS (1)
  - Tinnitus [Not Recovered/Not Resolved]

NARRATIVE: CASE EVENT DATE: 20160402
